FAERS Safety Report 5116662-X (Version None)
Quarter: 2006Q3

REPORT INFORMATION
  Report Type: 
  Country: None (occurrence: None)
  Receive Date: 20060928
  Receipt Date: 20060828
  Transmission Date: 20061208
  Serious: Yes (Hospitalization)
  Sender: FDA-Public Use
  Company Number: JP-JPN-A200603394

PATIENT
  Age: 75 Year
  Sex: Male
  Weight: 65 kg

DRUGS (4)
  1. VALTREX [Suspect]
     Indication: HERPES ZOSTER
     Dosage: 1000MG THREE TIMES PER DAY
     Route: 048
     Dates: start: 20060825, end: 20060828
  2. THEO-DUR [Concomitant]
     Indication: ASTHMA
     Dosage: 800MG PER DAY
     Dates: start: 20060817
  3. MUCODYNE [Concomitant]
     Dosage: 1000MG PER DAY
     Route: 048
     Dates: start: 20060817
  4. EPHEDRA [Concomitant]
     Dosage: 7.5MG PER DAY
     Route: 048
     Dates: start: 20060817

REACTIONS (11)
  - ANOREXIA [None]
  - ASCITES [None]
  - BLOOD CREATININE INCREASED [None]
  - CREATININE RENAL CLEARANCE DECREASED [None]
  - FACE OEDEMA [None]
  - GASTRIC MUCOSAL LESION [None]
  - NAUSEA [None]
  - OEDEMA PERIPHERAL [None]
  - RENAL DISORDER [None]
  - RENAL FAILURE ACUTE [None]
  - VOMITING [None]
